FAERS Safety Report 5659416-8 (Version None)
Quarter: 2008Q1

REPORT INFORMATION
  Report Type: 
  Country: None (occurrence: None)
  Receive Date: 20080311
  Receipt Date: 20080227
  Transmission Date: 20080703
  Serious: Yes (Life-Threatening, Hospitalization, Other)
  Sender: FDA-Public Use
  Company Number: GB-RANBAXY-2006RR-03688

PATIENT

DRUGS (4)
  1. AMLODIPIN RANBAXY 10MG TABLETTI [Suspect]
     Indication: ANGINA PECTORIS
     Dosage: 10 MG, QD
     Route: 048
  2. ARTHROTEC [Suspect]
     Indication: OSTEOARTHRITIS
     Dosage: 75 MG, QD
     Route: 065
  3. ATENOLOL [Suspect]
     Indication: ANGINA PECTORIS
     Dosage: 50 MG, UNK
     Route: 048
  4. DICLOFENAC SODIUM [Suspect]
     Dosage: 3.75 MG, UNK

REACTIONS (20)
  - ACCIDENTAL OVERDOSE [None]
  - ATRIOVENTRICULAR BLOCK COMPLETE [None]
  - BACK PAIN [None]
  - BRADYCARDIA [None]
  - CARDIOGENIC SHOCK [None]
  - CIRCULATORY COLLAPSE [None]
  - DIZZINESS [None]
  - DRUG TOXICITY [None]
  - ELECTROCARDIOGRAM ABNORMAL [None]
  - HAEMODIALYSIS [None]
  - HEPATOCELLULAR INJURY [None]
  - HYPERGLYCAEMIA [None]
  - HYPERKALAEMIA [None]
  - HYPOTENSION [None]
  - METABOLIC ACIDOSIS [None]
  - NEPHROPATHY TOXIC [None]
  - OVERDOSE [None]
  - RENAL FAILURE ACUTE [None]
  - RENAL TUBULAR NECROSIS [None]
  - VASODILATION PROCEDURE [None]
